FAERS Safety Report 21303206 (Version 5)
Quarter: 2022Q4

REPORT INFORMATION
  Report Type: Spontaneous
  Country: AT (occurrence: AT)
  Receive Date: 20220907
  Receipt Date: 20221019
  Transmission Date: 20230112
  Serious: Yes (Other)
  Sender: FDA-Public Use
  Company Number: AT-GILEAD-2022-0581692

PATIENT
  Age: 51 Year
  Sex: Female

DRUGS (6)
  1. BULEVIRTIDE [Suspect]
     Active Substance: BULEVIRTIDE
     Indication: Hepatitis D
     Dosage: UNK
     Route: 058
     Dates: start: 202103
  2. VIREAD [Suspect]
     Active Substance: TENOFOVIR DISOPROXIL FUMARATE
     Indication: Hepatitis B
     Dosage: 245 MG
     Route: 048
     Dates: start: 201603
  3. PEGYLATED INTERFERON ALPHA NOS [Suspect]
     Active Substance: PEGINTERFERON ALFA-2A OR PEGINTERFERON ALFA-2B
     Indication: Hepatitis D
     Dosage: UNK
     Route: 065
     Dates: start: 201806, end: 202006
  4. PEGYLATED INTERFERON ALPHA NOS [Suspect]
     Active Substance: PEGINTERFERON ALFA-2A OR PEGINTERFERON ALFA-2B
     Dosage: UNK REDUCED DOSE
     Route: 065
     Dates: start: 2019
  5. SPIRONOLACTONE [Concomitant]
     Active Substance: SPIRONOLACTONE
     Indication: Hepatic cirrhosis
     Dosage: 100 MG, UNK
     Route: 048
     Dates: start: 2016
  6. CARVEDILOL [Concomitant]
     Active Substance: CARVEDILOL
     Indication: Hepatic cirrhosis
     Dosage: 6.25 MG, UNK
     Route: 048
     Dates: start: 2016

REACTIONS (17)
  - Portal hypertension [Unknown]
  - Hepatic cirrhosis [Unknown]
  - Portal vein thrombosis [Unknown]
  - Hepatitis D [Recovered/Resolved]
  - Varices oesophageal [Unknown]
  - Leukopenia [Unknown]
  - Pancytopenia [Recovered/Resolved]
  - Thrombocytopenia [Unknown]
  - Viral load increased [Recovered/Resolved]
  - Viral infection [Recovered/Resolved]
  - Asthenia [Recovered/Resolved]
  - Fatigue [Recovered/Resolved]
  - Influenza like illness [Recovered/Resolved]
  - Transaminases increased [Recovered/Resolved]
  - Total bile acids increased [Not Recovered/Not Resolved]
  - COVID-19 [Unknown]
  - Hepatic function abnormal [Unknown]

NARRATIVE: CASE EVENT DATE: 20180101
